FAERS Safety Report 7511868-4 (Version None)
Quarter: 2011Q2

REPORT INFORMATION
  Report Type: 
  Country: None (occurrence: None)
  Receive Date: 20110531
  Receipt Date: 20110520
  Transmission Date: 20111010
  Serious: Yes (Hospitalization)
  Sender: FDA-Public Use
  Company Number: FR-ELI_LILLY_AND_COMPANY-FR201105007590

PATIENT
  Sex: Male

DRUGS (2)
  1. CLOPIDOGREL [Suspect]
  2. EFFIENT [Suspect]
     Indication: STENT PLACEMENT
     Dosage: 60 MG, UNK
     Route: 065
     Dates: start: 20110220

REACTIONS (2)
  - THROMBOSIS IN DEVICE [None]
  - DRUG RESISTANCE [None]
